FAERS Safety Report 11913423 (Version 1)
Quarter: 2016Q1

REPORT INFORMATION
  Report Type: Report from Study
  Country: FR (occurrence: FR)
  Receive Date: 20160113
  Receipt Date: 20160113
  Transmission Date: 20160526
  Serious: Yes (Hospitalization)
  Sender: FDA-Public Use
  Company Number: FR-BIOGEN-2015BI080848

PATIENT
  Age: 29 Year
  Sex: Male
  Weight: 77 kg

DRUGS (5)
  1. BG00012 [Suspect]
     Active Substance: DIMETHYL FUMARATE
     Indication: MULTIPLE SCLEROSIS
     Route: 048
     Dates: start: 20101217
  2. OMIX [Concomitant]
     Active Substance: TAMSULOSIN HYDROCHLORIDE
     Indication: DYSURIA
     Route: 048
     Dates: start: 20121109
  3. ALMOGRAN [Concomitant]
     Active Substance: ALMOTRIPTAN MALATE
     Indication: HEADACHE
     Route: 048
     Dates: start: 20090514
  4. BG00012 [Suspect]
     Active Substance: DIMETHYL FUMARATE
     Route: 048
     Dates: start: 20150302
  5. SANMIGRAN [Concomitant]
     Active Substance: PIZOTYLINE MALEATE
     Indication: HEADACHE
     Route: 048
     Dates: start: 20090709

REACTIONS (1)
  - Morbid thoughts [Recovered/Resolved]

NARRATIVE: CASE EVENT DATE: 20150402
